FAERS Safety Report 13023376 (Version 1)
Quarter: 2016Q4

REPORT INFORMATION
  Report Type: Spontaneous
  Country: US (occurrence: US)
  Receive Date: 20161211
  Receipt Date: 20161211
  Transmission Date: 20170207
  Serious: No
  Sender: FDA-Public Use
  Company Number: None

PATIENT
  Age: 31 Year
  Sex: Female
  Weight: 69.75 kg

DRUGS (1)
  1. IC SULFAMETHOXAZOLE-TMP-DS AB-AUROBINDO FARM [Suspect]
     Active Substance: SULFAMETHOXAZOLE\TRIMETHOPRIM
     Indication: INFECTION
     Dates: start: 20161204, end: 20161208

REACTIONS (2)
  - Hypersensitivity [None]
  - Arrhythmia [None]

NARRATIVE: CASE EVENT DATE: 20161207
